FAERS Safety Report 8094600-8 (Version None)
Quarter: 2011Q4

REPORT INFORMATION
  Report Type: 
  Country: None (occurrence: None)
  Receive Date: 20111222
  Receipt Date: 20110927
  Transmission Date: 20120403
  Serious: Yes (Hospitalization)
  Sender: FDA-Public Use
  Company Number: UTC-010576

PATIENT
  Age: 61 Year
  Sex: Female
  Weight: 80.4 kg

DRUGS (2)
  1. ADCIRCA (TADALAFIL) (UNKNOWN) [Concomitant]
  2. TYVASO [Suspect]
     Indication: PULMONARY ARTERIAL HYPERTENSION
     Dosage: 18 - 54 MICROGRAMS (4 IN 1 D), INHALATION
     Route: 055
     Dates: start: 20110616

REACTIONS (4)
  - BRONCHITIS [None]
  - WEIGHT INCREASED [None]
  - FLUID RETENTION [None]
  - DIZZINESS [None]
